FAERS Safety Report 7583231-1 (Version None)
Quarter: 2011Q2

REPORT INFORMATION
  Report Type: 
  Country: None (occurrence: None)
  Receive Date: 20110630
  Receipt Date: 20110621
  Transmission Date: 20111010
  Serious: Yes (Hospitalization)
  Sender: FDA-Public Use
  Company Number: DE-ACTELION-A-US2011-50827

PATIENT

DRUGS (1)
  1. VENTAVIS [Suspect]
     Indication: PULMONARY ARTERIAL HYPERTENSION
     Dosage: 5 UG, UNK
     Route: 055
     Dates: start: 20101210

REACTIONS (9)
  - POOR QUALITY SLEEP [None]
  - INFLUENZA LIKE ILLNESS [None]
  - OROPHARYNGEAL PAIN [None]
  - WEIGHT INCREASED [None]
  - COUGH [None]
  - SECRETION DISCHARGE [None]
  - WHEEZING [None]
  - BRONCHITIS [None]
  - DYSPHONIA [None]
